FAERS Safety Report 9061601 (Version 1)
Quarter: 2013Q1

REPORT INFORMATION
  Report Type: Spontaneous
  Country: US (occurrence: US)
  Receive Date: 20130204
  Receipt Date: 20130204
  Transmission Date: 20140127
  Serious: Yes (Hospitalization)
  Sender: FDA-Public Use
  Company Number: US-BAYER-2013-012415

PATIENT
  Age: 40 Year
  Sex: Female

DRUGS (25)
  1. YAZ [Suspect]
     Dosage: UNK
  2. GIANVI [Suspect]
     Dosage: UNK
  3. LEVOTHYROXINE [Concomitant]
     Dosage: 125 MCG TAB ALTERNATING WITH 112 MCG EVERY OTHER DAY
     Dates: start: 20120226
  4. LEVOTHYROXINE [Concomitant]
     Dosage: 125 MCG TAB ALTERNATING WITH 112 MCG EVERY OTHER DAY
     Dates: start: 20120229
  5. SUMATRIPTAN [Concomitant]
     Indication: MIGRAINE
     Dosage: 20 MG, UNK
     Route: 045
     Dates: start: 20120226
  6. SUMATRIPTAN [Concomitant]
     Indication: MIGRAINE
     Dosage: 20 MG, UNK
     Dates: start: 20120229
  7. IMITREX [Concomitant]
     Indication: MIGRAINE
     Dosage: 20 MG, UNK
     Route: 045
     Dates: start: 20120226
  8. IMITREX [Concomitant]
     Indication: MIGRAINE
     Dosage: 20 MG, UNK
     Dates: start: 20120229
  9. ROCEPHIN [Concomitant]
     Dosage: 1 G, UNK
     Route: 042
     Dates: start: 20120226
  10. DILAUDID [Concomitant]
     Indication: PAIN
     Dosage: 1 MG, UNK
     Route: 042
     Dates: start: 20120226
  11. ZOFRAN [Concomitant]
     Dosage: 4 MG, UNK
     Route: 042
     Dates: start: 20120226
  12. TORADOL [Concomitant]
     Dosage: 30 MG, UNK
     Route: 042
     Dates: start: 20120226
  13. CIPROFLOXACIN HCL [Concomitant]
     Indication: URINARY TRACT INFECTION
     Dosage: 500 MG, BID
     Dates: start: 20120226
  14. CIPROFLOXACIN HCL [Concomitant]
     Indication: URINARY TRACT INFECTION
     Dosage: 200 MG, BID
     Dates: start: 20120229
  15. CYCLOBENZAPRINE [Concomitant]
     Dosage: 10 MG, UNK
     Dates: start: 20120229
  16. FLEXERIL [Concomitant]
     Dosage: 10 MG, UNK
     Dates: start: 20120229
  17. VICODIN ES [Concomitant]
     Indication: PAIN
     Dosage: UNK UNK, PRN
     Dates: start: 20120226
  18. VICODIN ES [Concomitant]
     Indication: PAIN
     Dosage: UNK, UNK, PRN
     Dates: start: 20120229
  19. IBUPROFEN [Concomitant]
     Indication: PAIN
     Dosage: 800 MG, TID AS NEEDED
     Dates: start: 20120229
  20. ALBUTEROL [Concomitant]
     Dosage: UNK
  21. ATROVENT [Concomitant]
     Dosage: UNK, UNIT DOSE 4 TIMES A DAY WHILE AWAKE
  22. SYNTHROID [Concomitant]
     Dosage: 125 MCG DAILY
  23. LIDOCAINE [Concomitant]
     Indication: PAIN
     Dosage: , 5% PATCH FOR 12 HOURS DAILY AS NEEDEDUNK
  24. PERCOCET [Concomitant]
     Indication: BREAKTHROUGH PAIN
     Dosage: 5/325 MG 1-2 TABLETS PO Q 4-6 H PRN
  25. MOTRIN [Concomitant]
     Indication: PAIN
     Dosage: 800 MG PO Q 8 H PRN
     Route: 048

REACTIONS (1)
  - Pulmonary embolism [Recovered/Resolved]
